FAERS Safety Report 16048855 (Version 1)
Quarter: 2019Q1

REPORT INFORMATION
  Report Type: Spontaneous
  Country: FR (occurrence: FR)
  Receive Date: 20190307
  Receipt Date: 20190307
  Transmission Date: 20190418
  Serious: Yes (Hospitalization, Other)
  Sender: FDA-Public Use
  Company Number: FR-MYLANLABS-V-DE-2007-1871

PATIENT
  Age: 3 Year
  Sex: Female

DRUGS (6)
  1. SULFAMETHOXAZOLE W/TRIMETHOPRIM [Suspect]
     Active Substance: SULFAMETHOXAZOLE\TRIMETHOPRIM
     Indication: DIARRHOEA
     Dosage: UNK
     Route: 065
     Dates: start: 20051201
  2. SULFAMETHOXAZOLE W/TRIMETHOPRIM [Suspect]
     Active Substance: SULFAMETHOXAZOLE\TRIMETHOPRIM
     Indication: OCULAR ICTERUS
  3. SULPHAMETHOXAZOLE/TRIMETHOPRIM [Suspect]
     Active Substance: SULFAMETHOXAZOLE\TRIMETHOPRIM
     Indication: OCULAR ICTERUS
  4. CEFIXIME. [Suspect]
     Active Substance: CEFIXIME
     Indication: DIARRHOEA
     Dosage: DOSE AS USED: UNK
     Dates: start: 20051201
  5. SULPHAMETHOXAZOLE/TRIMETHOPRIM [Suspect]
     Active Substance: SULFAMETHOXAZOLE\TRIMETHOPRIM
     Indication: DIARRHOEA
     Dosage: UNK
     Dates: start: 200512
  6. CEFIXIME. [Suspect]
     Active Substance: CEFIXIME
     Indication: OCULAR ICTERUS

REACTIONS (10)
  - Proteinuria [Recovered/Resolved]
  - Eosinophilia [Recovered/Resolved]
  - Acute kidney injury [Recovered/Resolved]
  - Drug reaction with eosinophilia and systemic symptoms [Recovered/Resolved]
  - Blood creatinine increased [Recovered/Resolved]
  - Polyuria [Recovered/Resolved]
  - Tubulointerstitial nephritis [Recovered/Resolved]
  - Monocytosis [Recovered/Resolved]
  - Pyrexia [Recovered/Resolved]
  - Leukocyturia [Recovered/Resolved]
